FAERS Safety Report 8924322 (Version 6)
Quarter: 2014Q1

REPORT INFORMATION
  Report Type: Spontaneous
  Country: US (occurrence: US)
  Receive Date: 20121126
  Receipt Date: 20140207
  Transmission Date: 20141002
  Serious: Yes (Hospitalization, Disabling, Other)
  Sender: FDA-Public Use
  Company Number: US-009507513-1211USA008463

PATIENT
  Sex: Female
  Weight: 61.22 kg

DRUGS (2)
  1. FOSAMAX [Suspect]
     Dosage: UNK
     Route: 048
  2. ACTONEL [Suspect]
     Indication: OSTEOPOROSIS
     Dosage: 35 MG, QW
     Dates: end: 2008

REACTIONS (42)
  - Intramedullary rod insertion [Unknown]
  - Bone graft [Unknown]
  - Medical device removal [Unknown]
  - Low turnover osteopathy [Not Recovered/Not Resolved]
  - Femur fracture [Unknown]
  - Intramedullary rod insertion [Unknown]
  - Intramedullary rod insertion [Unknown]
  - Femur fracture [Not Recovered/Not Resolved]
  - Femur fracture [Unknown]
  - Thyroid cyst [Unknown]
  - Hypercholesterolaemia [Unknown]
  - Device failure [Unknown]
  - Fracture delayed union [Unknown]
  - Foot fracture [Unknown]
  - Tendonitis [Unknown]
  - Arthritis [Unknown]
  - Anxiety [Unknown]
  - Weight increased [Unknown]
  - Blood alkaline phosphatase decreased [Unknown]
  - Osteopenia [Unknown]
  - Skin papilloma [Unknown]
  - Osteoarthritis [Unknown]
  - Osteoarthritis [Unknown]
  - Premature menopause [Unknown]
  - Dysmenorrhoea [Unknown]
  - Vitamin D deficiency [Unknown]
  - Retinal detachment [Unknown]
  - Eye laser surgery [Unknown]
  - Urine calcium increased [Unknown]
  - Limb injury [Unknown]
  - Osteomalacia [Unknown]
  - Injury [Unknown]
  - Bone scan abnormal [Unknown]
  - Arthritis [Unknown]
  - Spinal osteoarthritis [Unknown]
  - Fractured sacrum [Unknown]
  - Arthralgia [Unknown]
  - Pain in extremity [Unknown]
  - Gastrooesophageal reflux disease [Unknown]
  - Rash [Unknown]
  - Drug ineffective [Unknown]
  - Drug ineffective [Unknown]
